FAERS Safety Report 8288126-6 (Version None)
Quarter: 2012Q2

REPORT INFORMATION
  Report Type: 
  Country: None (occurrence: None)
  Receive Date: 20120411
  Receipt Date: 20120409
  Transmission Date: 20120825
  Serious: Yes (Life-Threatening, Hospitalization, Other)
  Sender: FDA-Public Use
  Company Number: ADR-2011-10698

PATIENT
  Age: 73 Year
  Sex: Male

DRUGS (1)
  1. LIORESAL [Suspect]
     Indication: MUSCLE SPASTICITY
     Dosage: SEE B5

REACTIONS (8)
  - COMA [None]
  - LETHARGY [None]
  - HEADACHE [None]
  - DELIRIUM [None]
  - DEVICE CONNECTION ISSUE [None]
  - OVERDOSE [None]
  - IMPLANT SITE SWELLING [None]
  - CONFUSIONAL STATE [None]
